FAERS Safety Report 9816634 (Version 1)
Quarter: 2014Q1

REPORT INFORMATION
  Report Type: Spontaneous
  Country: FR (occurrence: FR)
  Receive Date: 20140114
  Receipt Date: 20140114
  Transmission Date: 20141002
  Serious: Yes (Hospitalization)
  Sender: FDA-Public Use
  Company Number: FR-ASTRAZENECA-2014SE02222

PATIENT
  Age: 27866 Day
  Sex: Female

DRUGS (11)
  1. CRESTOR [Suspect]
     Route: 048
     Dates: start: 20131002
  2. CRESTOR [Suspect]
     Route: 048
     Dates: start: 201310
  3. ZANIDIP [Suspect]
     Route: 048
  4. LASILIX [Suspect]
     Route: 048
     Dates: start: 20130930
  5. PARIET [Suspect]
     Route: 048
  6. OLMETEC [Suspect]
     Route: 048
     Dates: start: 20130925
  7. ALTEIS [Concomitant]
     Route: 048
     Dates: start: 20130926, end: 20131002
  8. DOLIPRANE [Concomitant]
     Route: 048
     Dates: start: 20130914
  9. SERETIDE DISKUS [Concomitant]
     Dosage: 250/50 MCG/DOSE
     Route: 055
  10. MONTELUKAST ACIDE [Concomitant]
     Route: 048
  11. METEOSPASMYL [Concomitant]
     Dates: start: 20130914

REACTIONS (7)
  - Diarrhoea [Recovered/Resolved]
  - General physical health deterioration [Unknown]
  - Nausea [Recovered/Resolved]
  - Decreased appetite [Unknown]
  - Abdominal distension [Unknown]
  - Eructation [Unknown]
  - Abdominal discomfort [Unknown]
